FAERS Safety Report 7019661-6 (Version None)
Quarter: 2010Q3

REPORT INFORMATION
  Report Type: 
  Country: None (occurrence: None)
  Receive Date: 20100928
  Receipt Date: 20100928
  Transmission Date: 20110219
  Serious: No
  Sender: FDA-Public Use
  Company Number: None

PATIENT
  Age: 42 Year
  Sex: Female
  Weight: 54.4316 kg

DRUGS (1)
  1. FLUPHENAZINE [Suspect]
     Dosage: 62.5 MG EVERY 2 WEEKS IM
     Route: 030

REACTIONS (1)
  - OCULOGYRIC CRISIS [None]
